FAERS Safety Report 20920603 (Version 1)
Quarter: 2022Q2

REPORT INFORMATION
  Report Type: Spontaneous
  Country: US (occurrence: None)
  Receive Date: 20220606
  Receipt Date: 20220606
  Transmission Date: 20220721
  Serious: Yes (Death)
  Sender: FDA-Public Use
  Company Number: None

PATIENT
  Age: 78 Year
  Sex: Male
  Weight: 73.53 kg

DRUGS (9)
  1. TRELSTAR [Suspect]
     Active Substance: TRIPTORELIN PAMOATE
     Indication: Prostate cancer
     Dosage: OTHER QUANTITY : 22.5MG;?OTHER FREQUENCY : Q6 MONTHS;?
     Route: 030
  2. XARELTO [Concomitant]
     Active Substance: RIVAROXABAN
  3. CARVEDILOL [Concomitant]
     Active Substance: CARVEDILOL
  4. TAMSULOSIN HYDROCHLORIDE [Concomitant]
     Active Substance: TAMSULOSIN HYDROCHLORIDE
  5. AMLODIPINE BESYLATE [Concomitant]
     Active Substance: AMLODIPINE BESYLATE
  6. IRON [Concomitant]
     Active Substance: IRON
  7. SILDENAFIL [Concomitant]
     Active Substance: SILDENAFIL
  8. GLIPIZIDE-METFORMIN HCL [Concomitant]
  9. IRBESARTAN [Concomitant]
     Active Substance: IRBESARTAN

REACTIONS (1)
  - Death [None]
